FAERS Safety Report 19813429 (Version 1)
Quarter: 2021Q3

REPORT INFORMATION
  Report Type: Report from Study
  Country: US (occurrence: US)
  Receive Date: 20210910
  Receipt Date: 20210910
  Transmission Date: 20211014
  Serious: Yes (Other)
  Sender: FDA-Public Use
  Company Number: US-TAKEDA-US202015710

PATIENT
  Age: 62 Year
  Sex: Female

DRUGS (2)
  1. COVID?19 VACCINE NOS. [Suspect]
     Active Substance: COVID-19 VACCINE NOS
     Indication: PRODUCT USED FOR UNKNOWN INDICATION
     Route: 065
  2. HUMAN IMMUNOGLOBULIN; HYALURONIDASE [Suspect]
     Active Substance: HUMAN IMMUNOGLOBULIN G\HYALURONIDASE RECOMBINANT HUMAN
     Indication: PRIMARY IMMUNODEFICIENCY SYNDROME
     Dosage: 50 GRAM, UNKNOWN
     Route: 065

REACTIONS (12)
  - Arthralgia [Unknown]
  - Pain [Unknown]
  - Insomnia [Unknown]
  - Dysphonia [Unknown]
  - Swelling face [Unknown]
  - COVID-19 immunisation [Unknown]
  - Fatigue [Unknown]
  - Autoimmune disorder [Unknown]
  - Malaise [Unknown]
  - Pain in extremity [Unknown]
  - Gout [Unknown]
  - Dry skin [Unknown]

NARRATIVE: CASE EVENT DATE: 20200506
